FAERS Safety Report 9343728 (Version 1)
Quarter: 2013Q2

REPORT INFORMATION
  Report Type: Spontaneous
  Country: US (occurrence: US)
  Receive Date: 20130612
  Receipt Date: 20130612
  Transmission Date: 20140414
  Serious: No
  Sender: FDA-Public Use
  Company Number: US-JNJFOC-20130513565

PATIENT
  Age: 48 Year
  Sex: Female
  Weight: 99.79 kg

DRUGS (5)
  1. STELARA [Suspect]
     Indication: PUSTULAR PSORIASIS
     Route: 058
     Dates: start: 201303
  2. STELARA [Suspect]
     Indication: ERYTHRODERMIC PSORIASIS
     Route: 058
     Dates: start: 201303
  3. STELARA [Suspect]
     Indication: GUTTATE PSORIASIS
     Route: 058
     Dates: start: 201303
  4. STELARA [Suspect]
     Indication: PSORIASIS
     Route: 058
     Dates: start: 201303
  5. PROVERA [Concomitant]
     Indication: MENOPAUSE
     Route: 065

REACTIONS (2)
  - Pustular psoriasis [Not Recovered/Not Resolved]
  - Headache [Unknown]
